FAERS Safety Report 17984269 (Version 5)
Quarter: 2020Q4

REPORT INFORMATION
  Report Type: Spontaneous
  Country: US (occurrence: US)
  Receive Date: 20200706
  Receipt Date: 20201110
  Transmission Date: 20210113
  Serious: Yes (Hospitalization)
  Sender: FDA-Public Use
  Company Number: US-LEXICON PHARMACEUTICALS, INC-20-1606-00511

PATIENT
  Age: 59 Year
  Sex: Male

DRUGS (3)
  1. XERMELO [Suspect]
     Active Substance: TELOTRISTAT ETHYL
  2. SANDOSTATIN [Concomitant]
     Active Substance: OCTREOTIDE ACETATE
  3. XERMELO [Suspect]
     Active Substance: TELOTRISTAT ETHYL
     Indication: CARCINOID TUMOUR
     Dates: start: 20190608

REACTIONS (4)
  - Dehydration [Unknown]
  - Hospitalisation [Unknown]
  - Emergency care [Unknown]
  - Radioembolisation [Unknown]

NARRATIVE: CASE EVENT DATE: 2020
